FAERS Safety Report 24664942 (Version 4)
Quarter: 2025Q3

REPORT INFORMATION
  Report Type: Spontaneous
  Country: CA (occurrence: CA)
  Receive Date: 20241126
  Receipt Date: 20250812
  Transmission Date: 20251021
  Serious: Yes (Death, Other)
  Sender: BRISTOL-MYERS SQUIBB COMPANY
  Company Number: CA-BRISTOL-MYERS SQUIBB COMPANY-2024-184685

PATIENT
  Sex: Female

DRUGS (274)
  1. ORENCIA [Suspect]
     Active Substance: ABATACEPT
     Indication: Product used for unknown indication
     Route: 042
  2. ORENCIA [Suspect]
     Active Substance: ABATACEPT
     Route: 042
  3. ORENCIA [Suspect]
     Active Substance: ABATACEPT
     Route: 042
  4. ORENCIA [Suspect]
     Active Substance: ABATACEPT
     Indication: Product used for unknown indication
     Route: 058
  5. ORENCIA [Suspect]
     Active Substance: ABATACEPT
     Route: 058
  6. ORENCIA [Suspect]
     Active Substance: ABATACEPT
     Route: 058
  7. ORENCIA [Suspect]
     Active Substance: ABATACEPT
     Route: 058
  8. ORENCIA [Suspect]
     Active Substance: ABATACEPT
     Indication: Product used for unknown indication
  9. ORENCIA [Suspect]
     Active Substance: ABATACEPT
     Route: 053
  10. ORENCIA [Suspect]
     Active Substance: ABATACEPT
  11. ORENCIA [Suspect]
     Active Substance: ABATACEPT
  12. ORENCIA [Suspect]
     Active Substance: ABATACEPT
  13. ORENCIA [Suspect]
     Active Substance: ABATACEPT
  14. TRIAMCINOLONE ACETONIDE [Suspect]
     Active Substance: TRIAMCINOLONE ACETONIDE
     Indication: Product used for unknown indication
     Route: 014
  15. TRIAMCINOLONE ACETONIDE [Suspect]
     Active Substance: TRIAMCINOLONE ACETONIDE
  16. ACETAMINOPHEN [Concomitant]
     Active Substance: ACETAMINOPHEN
     Indication: Product used for unknown indication
  17. ACETAMINOPHEN [Concomitant]
     Active Substance: ACETAMINOPHEN
  18. ACETAMINOPHEN [Concomitant]
     Active Substance: ACETAMINOPHEN
     Route: 058
  19. ACETAMINOPHEN [Concomitant]
     Active Substance: ACETAMINOPHEN
  20. ACETAMINOPHEN [Concomitant]
     Active Substance: ACETAMINOPHEN
  21. ACETAMINOPHEN [Concomitant]
     Active Substance: ACETAMINOPHEN
  22. ACETAMINOPHEN [Concomitant]
     Active Substance: ACETAMINOPHEN
  23. ACETAMINOPHEN [Concomitant]
     Active Substance: ACETAMINOPHEN
  24. ACETAMINOPHEN [Concomitant]
     Active Substance: ACETAMINOPHEN
  25. ACETAMINOPHEN [Concomitant]
     Active Substance: ACETAMINOPHEN
  26. ACETAMINOPHEN [Concomitant]
     Active Substance: ACETAMINOPHEN
  27. ACETAMINOPHEN [Concomitant]
     Active Substance: ACETAMINOPHEN
  28. ADALIMUMAB [Concomitant]
     Active Substance: ADALIMUMAB
     Indication: Product used for unknown indication
     Route: 042
  29. ADALIMUMAB [Concomitant]
     Active Substance: ADALIMUMAB
     Route: 058
  30. ADALIMUMAB [Concomitant]
     Active Substance: ADALIMUMAB
     Route: 048
  31. ADALIMUMAB [Concomitant]
     Active Substance: ADALIMUMAB
     Route: 058
  32. ALENDRONATE SODIUM [Concomitant]
     Active Substance: ALENDRONATE SODIUM
     Indication: Product used for unknown indication
  33. ALENDRONATE SODIUM [Concomitant]
     Active Substance: ALENDRONATE SODIUM
  34. PANTOPRAZOLE SODIUM [Concomitant]
     Active Substance: PANTOPRAZOLE SODIUM
     Indication: Product used for unknown indication
     Route: 016
  35. APREMILAST [Concomitant]
     Active Substance: APREMILAST
     Indication: Product used for unknown indication
  36. AZATHIOPRINE [Concomitant]
     Active Substance: AZATHIOPRINE
     Indication: Product used for unknown indication
  37. CALCIUM [Concomitant]
     Active Substance: CALCIUM
     Indication: Product used for unknown indication
  38. CALCIUM CARBONATE [Concomitant]
     Active Substance: CALCIUM CARBONATE
     Indication: Product used for unknown indication
     Route: 016
  39. CALCIUM CARBONATE [Concomitant]
     Active Substance: CALCIUM CARBONATE
  40. CALCIUM CARBONATE [Concomitant]
     Active Substance: CALCIUM CARBONATE
  41. CALCIUM CITRATE [Concomitant]
     Active Substance: CALCIUM CITRATE
     Indication: Product used for unknown indication
  42. CALCIUM GLUBIONATE [Concomitant]
     Active Substance: CALCIUM GLUBIONATE
     Indication: Product used for unknown indication
  43. CELECOXIB [Concomitant]
     Active Substance: CELECOXIB
     Indication: Product used for unknown indication
     Route: 048
  44. CELECOXIB [Concomitant]
     Active Substance: CELECOXIB
     Route: 058
  45. CELECOXIB [Concomitant]
     Active Substance: CELECOXIB
     Route: 048
  46. CELECOXIB [Concomitant]
     Active Substance: CELECOXIB
  47. CERTOLIZUMAB PEGOL [Concomitant]
     Active Substance: CERTOLIZUMAB PEGOL
     Indication: Product used for unknown indication
     Route: 058
  48. CHLORHEXIDINE GLUCONATE [Concomitant]
     Active Substance: CHLORHEXIDINE GLUCONATE
     Indication: Product used for unknown indication
  49. CHLORHEXIDINE GLUCONATE [Concomitant]
     Active Substance: CHLORHEXIDINE GLUCONATE
     Route: 002
  50. CHLORHEXIDINE GLUCONATE [Concomitant]
     Active Substance: CHLORHEXIDINE GLUCONATE
  51. CIMZIA [Concomitant]
     Active Substance: CERTOLIZUMAB PEGOL
     Indication: Product used for unknown indication
     Route: 058
  52. CIMZIA [Concomitant]
     Active Substance: CERTOLIZUMAB PEGOL
     Route: 058
  53. CIMZIA [Concomitant]
     Active Substance: CERTOLIZUMAB PEGOL
     Route: 058
  54. CLONIDINE HYDROCHLORIDE [Concomitant]
     Active Substance: CLONIDINE HYDROCHLORIDE
     Indication: Product used for unknown indication
  55. CLOTRIMAZOLE\HYDROCORTISONE [Concomitant]
     Active Substance: CLOTRIMAZOLE\HYDROCORTISONE
     Indication: Product used for unknown indication
     Route: 048
  56. CLOTRIMAZOLE\HYDROCORTISONE [Concomitant]
     Active Substance: CLOTRIMAZOLE\HYDROCORTISONE
  57. CLOTRIMAZOLE\HYDROCORTISONE [Concomitant]
     Active Substance: CLOTRIMAZOLE\HYDROCORTISONE
     Route: 048
  58. CLOTRIMAZOLE\HYDROCORTISONE [Concomitant]
     Active Substance: CLOTRIMAZOLE\HYDROCORTISONE
  59. CORTISONE (HYDROCORTISONE) [Concomitant]
     Active Substance: HYDROCORTISONE
     Indication: Product used for unknown indication
     Route: 058
  60. CORTISONE ACETATE [Concomitant]
     Active Substance: CORTISONE ACETATE
     Indication: Product used for unknown indication
     Route: 003
  61. CORTISONE ACETATE [Concomitant]
     Active Substance: CORTISONE ACETATE
  62. CORTISONE ACETATE [Concomitant]
     Active Substance: CORTISONE ACETATE
  63. DESOXIMETASONE [Concomitant]
     Active Substance: DESOXIMETASONE
     Indication: Product used for unknown indication
     Route: 048
  64. DESOXIMETASONE [Concomitant]
     Active Substance: DESOXIMETASONE
     Route: 003
  65. DESOXIMETASONE [Concomitant]
     Active Substance: DESOXIMETASONE
     Route: 003
  66. DICLOFENAC [Concomitant]
     Active Substance: DICLOFENAC
     Indication: Product used for unknown indication
  67. DICLOFENAC [Concomitant]
     Active Substance: DICLOFENAC
  68. DICLOFENAC DIETHYLAMINE [Concomitant]
     Active Substance: DICLOFENAC DIETHYLAMINE
     Indication: Product used for unknown indication
  69. DICLOFENAC DIETHYLAMINE [Concomitant]
     Active Substance: DICLOFENAC DIETHYLAMINE
  70. DICLOFENAC DIETHYLAMINE [Concomitant]
     Active Substance: DICLOFENAC DIETHYLAMINE
  71. DICLOFENAC DIETHYLAMINE [Concomitant]
     Active Substance: DICLOFENAC DIETHYLAMINE
  72. DICLOFENAC DIETHYLAMINE [Concomitant]
     Active Substance: DICLOFENAC DIETHYLAMINE
  73. DICLOFENAC DIETHYLAMINE [Concomitant]
     Active Substance: DICLOFENAC DIETHYLAMINE
  74. DICLOFENAC DIETHYLAMINE [Concomitant]
     Active Substance: DICLOFENAC DIETHYLAMINE
  75. DICLOFENAC DIETHYLAMINE [Concomitant]
     Active Substance: DICLOFENAC DIETHYLAMINE
  76. DICLOFENAC DIETHYLAMINE [Concomitant]
     Active Substance: DICLOFENAC DIETHYLAMINE
  77. DICLOFENAC DIETHYLAMINE [Concomitant]
     Active Substance: DICLOFENAC DIETHYLAMINE
  78. DICLOFENAC POTASSIUM [Concomitant]
     Active Substance: DICLOFENAC POTASSIUM
     Indication: Product used for unknown indication
  79. DICLOFENAC POTASSIUM [Concomitant]
     Active Substance: DICLOFENAC POTASSIUM
  80. DICLOFENAC SODIUM [Concomitant]
     Active Substance: DICLOFENAC SODIUM
     Indication: Product used for unknown indication
     Route: 058
  81. DICLOFENAC SODIUM [Concomitant]
     Active Substance: DICLOFENAC SODIUM
  82. DICLOFENAC SODIUM [Concomitant]
     Active Substance: DICLOFENAC SODIUM
  83. DICLOFENAC SODIUM [Concomitant]
     Active Substance: DICLOFENAC SODIUM
  84. DICLOFENAC SODIUM [Concomitant]
     Active Substance: DICLOFENAC SODIUM
  85. DICLOFENAC SODIUM [Concomitant]
     Active Substance: DICLOFENAC SODIUM
  86. DICLOFENAC SODIUM [Concomitant]
     Active Substance: DICLOFENAC SODIUM
  87. DICLOFENAC SODIUM [Concomitant]
     Active Substance: DICLOFENAC SODIUM
  88. DILTIAZEM HYDROCHLORIDE [Concomitant]
     Active Substance: DILTIAZEM HYDROCHLORIDE
     Indication: Product used for unknown indication
     Route: 042
  89. DIPHENHYDRAMINE HYDROCHLORIDE [Concomitant]
     Active Substance: DIPHENHYDRAMINE HYDROCHLORIDE
     Indication: Product used for unknown indication
  90. DOXYCYCLINE HYCLATE [Concomitant]
     Active Substance: DOXYCYCLINE HYCLATE
     Indication: Product used for unknown indication
  91. SULFISOMIDINE [Concomitant]
     Active Substance: SULFISOMIDINE
     Indication: Product used for unknown indication
  92. ENBREL [Concomitant]
     Active Substance: ETANERCEPT
     Indication: Product used for unknown indication
     Route: 058
  93. ENBREL [Concomitant]
     Active Substance: ETANERCEPT
     Route: 058
  94. ENBREL [Concomitant]
     Active Substance: ETANERCEPT
     Route: 058
  95. ENBREL [Concomitant]
     Active Substance: ETANERCEPT
     Route: 058
  96. ENTYVIO [Concomitant]
     Active Substance: VEDOLIZUMAB
     Indication: Product used for unknown indication
  97. ERELZI [Concomitant]
     Active Substance: ETANERCEPT-SZZS
     Indication: Product used for unknown indication
     Route: 058
  98. ERELZI [Concomitant]
     Active Substance: ETANERCEPT-SZZS
     Route: 058
  99. FOLIC ACID [Concomitant]
     Active Substance: FOLIC ACID
     Indication: Product used for unknown indication
     Route: 048
  100. FOLIC ACID [Concomitant]
     Active Substance: FOLIC ACID
     Route: 048
  101. FOLIC ACID [Concomitant]
     Active Substance: FOLIC ACID
     Route: 048
  102. FOLIC ACID [Concomitant]
     Active Substance: FOLIC ACID
  103. FOLIC ACID [Concomitant]
     Active Substance: FOLIC ACID
  104. FOLIC ACID [Concomitant]
     Active Substance: FOLIC ACID
  105. FOLIC ACID [Concomitant]
     Active Substance: FOLIC ACID
  106. FOLIC ACID [Concomitant]
     Active Substance: FOLIC ACID
     Route: 049
  107. FOLIC ACID [Concomitant]
     Active Substance: FOLIC ACID
     Route: 048
  108. FOLIC ACID [Concomitant]
     Active Substance: FOLIC ACID
  109. FRAMYCETIN SULFATE [Concomitant]
     Active Substance: FRAMYCETIN SULFATE
     Indication: Product used for unknown indication
  110. GOLIMUMAB [Concomitant]
     Active Substance: GOLIMUMAB
     Indication: Product used for unknown indication
  111. GRAMICIDIN [Concomitant]
     Active Substance: GRAMICIDIN
     Indication: Product used for unknown indication
  112. HUMIRA [Concomitant]
     Active Substance: ADALIMUMAB
     Indication: Product used for unknown indication
     Route: 058
  113. HUMIRA [Concomitant]
     Active Substance: ADALIMUMAB
     Route: 058
  114. HUMIRA [Concomitant]
     Active Substance: ADALIMUMAB
     Route: 058
  115. HUMIRA [Concomitant]
     Active Substance: ADALIMUMAB
     Route: 058
  116. HYDROCORTISONE SODIUM SUCCINATE [Concomitant]
     Active Substance: HYDROCORTISONE SODIUM SUCCINATE
     Indication: Product used for unknown indication
     Route: 048
  117. HYDROCORTISONE SODIUM SUCCINATE [Concomitant]
     Active Substance: HYDROCORTISONE SODIUM SUCCINATE
     Route: 049
  118. HYDROXYCHLOROQUINE [Concomitant]
     Active Substance: HYDROXYCHLOROQUINE
     Indication: Product used for unknown indication
     Route: 048
  119. HYDROXYCHLOROQUINE [Concomitant]
     Active Substance: HYDROXYCHLOROQUINE
     Route: 048
  120. HYDROXYCHLOROQUINE [Concomitant]
     Active Substance: HYDROXYCHLOROQUINE
     Route: 048
  121. HYDROXYCHLOROQUINE [Concomitant]
     Active Substance: HYDROXYCHLOROQUINE
     Route: 058
  122. HYDROXYCHLOROQUINE SULFATE [Concomitant]
     Active Substance: HYDROXYCHLOROQUINE SULFATE
     Indication: Product used for unknown indication
     Route: 049
  123. HYDROXYCHLOROQUINE SULFATE [Concomitant]
     Active Substance: HYDROXYCHLOROQUINE SULFATE
     Route: 048
  124. HYDROXYCHLOROQUINE SULFATE [Concomitant]
     Active Substance: HYDROXYCHLOROQUINE SULFATE
     Route: 048
  125. HYDROXYCHLOROQUINE SULFATE [Concomitant]
     Active Substance: HYDROXYCHLOROQUINE SULFATE
  126. HYDROXYCHLOROQUINE SULFATE [Concomitant]
     Active Substance: HYDROXYCHLOROQUINE SULFATE
  127. HYDROXYCHLOROQUINE SULFATE [Concomitant]
     Active Substance: HYDROXYCHLOROQUINE SULFATE
     Route: 048
  128. HYDROXYCHLOROQUINE SULFATE [Concomitant]
     Active Substance: HYDROXYCHLOROQUINE SULFATE
     Route: 048
  129. HYDROXYCHLOROQUINE SULFATE [Concomitant]
     Active Substance: HYDROXYCHLOROQUINE SULFATE
  130. INFLIXIMAB [Concomitant]
     Active Substance: INFLIXIMAB
     Indication: Product used for unknown indication
  131. INFLIXIMAB [Concomitant]
     Active Substance: INFLIXIMAB
     Route: 042
  132. ISOPROPYL ALCOHOL [Concomitant]
     Active Substance: ISOPROPYL ALCOHOL
     Indication: Product used for unknown indication
     Route: 048
  133. LYRICA [Concomitant]
     Active Substance: PREGABALIN
     Indication: Product used for unknown indication
  134. MESALAMINE [Concomitant]
     Active Substance: MESALAMINE
     Indication: Product used for unknown indication
  135. METHOTREXATE [Concomitant]
     Active Substance: METHOTREXATE
     Indication: Product used for unknown indication
     Route: 048
  136. METHOTREXATE [Concomitant]
     Active Substance: METHOTREXATE
  137. METHOTREXATE [Concomitant]
     Active Substance: METHOTREXATE
     Route: 048
  138. METHOTREXATE [Concomitant]
     Active Substance: METHOTREXATE
     Route: 048
  139. METHOTREXATE [Concomitant]
     Active Substance: METHOTREXATE
     Route: 048
  140. METHOTREXATE [Concomitant]
     Active Substance: METHOTREXATE
     Route: 013
  141. METHOTREXATE [Concomitant]
     Active Substance: METHOTREXATE
     Route: 048
  142. METHOTREXATE [Concomitant]
     Active Substance: METHOTREXATE
     Route: 048
  143. METHOTREXATE [Concomitant]
     Active Substance: METHOTREXATE
     Route: 058
  144. METHOTREXATE [Concomitant]
     Active Substance: METHOTREXATE
     Route: 016
  145. METHOTREXATE [Concomitant]
     Active Substance: METHOTREXATE
     Route: 048
  146. METHOTREXATE [Concomitant]
     Active Substance: METHOTREXATE
  147. METHOTREXATE [Concomitant]
     Active Substance: METHOTREXATE
     Route: 048
  148. METHOTREXATE [Concomitant]
     Active Substance: METHOTREXATE
     Route: 058
  149. METHOTREXATE [Concomitant]
     Active Substance: METHOTREXATE
     Route: 013
  150. METHYLPREDNISOLONE SODIUM SUCCINATE [Concomitant]
     Active Substance: METHYLPREDNISOLONE SODIUM SUCCINATE
     Indication: Product used for unknown indication
     Route: 048
  151. MORPHINE SULFATE [Concomitant]
     Active Substance: MORPHINE SULFATE
     Indication: Product used for unknown indication
  152. MYCOPHENOLATE MOFETIL [Concomitant]
     Active Substance: MYCOPHENOLATE MOFETIL
     Indication: Product used for unknown indication
  153. NAPROXEN SODIUM [Concomitant]
     Active Substance: NAPROXEN SODIUM
     Indication: Product used for unknown indication
  154. NAPROXEN SODIUM [Concomitant]
     Active Substance: NAPROXEN SODIUM
  155. NITROFURAZONE [Concomitant]
     Active Substance: NITROFURAZONE
     Indication: Product used for unknown indication
     Route: 048
  156. NITROFURAZONE [Concomitant]
     Active Substance: NITROFURAZONE
     Route: 048
  157. OTEZLA [Concomitant]
     Active Substance: APREMILAST
     Indication: Product used for unknown indication
     Route: 048
  158. OTEZLA [Concomitant]
     Active Substance: APREMILAST
  159. OTEZLA [Concomitant]
     Active Substance: APREMILAST
     Route: 048
  160. OTEZLA [Concomitant]
     Active Substance: APREMILAST
  161. OTEZLA [Concomitant]
     Active Substance: APREMILAST
  162. OXYCODONE TEREPHTHALATE [Concomitant]
     Active Substance: OXYCODONE TEREPHTHALATE
     Indication: Product used for unknown indication
  163. PHTHALYLSULFATHIAZOLE [Concomitant]
     Active Substance: PHTHALYLSULFATHIAZOLE
     Indication: Product used for unknown indication
     Route: 048
  164. PHTHALYLSULFATHIAZOLE [Concomitant]
     Active Substance: PHTHALYLSULFATHIAZOLE
  165. PHTHALYLSULFATHIAZOLE [Concomitant]
     Active Substance: PHTHALYLSULFATHIAZOLE
     Route: 048
  166. PHTHALYLSULFATHIAZOLE [Concomitant]
     Active Substance: PHTHALYLSULFATHIAZOLE
     Route: 048
  167. PHTHALYLSULFATHIAZOLE [Concomitant]
     Active Substance: PHTHALYLSULFATHIAZOLE
     Route: 016
  168. PHTHALYLSULFATHIAZOLE [Concomitant]
     Active Substance: PHTHALYLSULFATHIAZOLE
     Route: 058
  169. PHTHALYLSULFATHIAZOLE [Concomitant]
     Active Substance: PHTHALYLSULFATHIAZOLE
     Route: 048
  170. PHTHALYLSULFATHIAZOLE [Concomitant]
     Active Substance: PHTHALYLSULFATHIAZOLE
     Route: 048
  171. PREDNISONE [Concomitant]
     Active Substance: PREDNISONE
     Indication: Product used for unknown indication
     Route: 048
  172. PREDNISONE [Concomitant]
     Active Substance: PREDNISONE
     Route: 048
  173. PREDNISONE [Concomitant]
     Active Substance: PREDNISONE
     Route: 048
  174. PREDNISONE [Concomitant]
     Active Substance: PREDNISONE
     Route: 048
  175. PREDNISONE [Concomitant]
     Active Substance: PREDNISONE
  176. PREDNISONE [Concomitant]
     Active Substance: PREDNISONE
  177. PREDNISONE [Concomitant]
     Active Substance: PREDNISONE
     Route: 048
  178. PSEUDOEPHEDRINE [Concomitant]
     Active Substance: PSEUDOEPHEDRINE
     Indication: Product used for unknown indication
  179. QUETIAPINE FUMARATE [Concomitant]
     Active Substance: QUETIAPINE FUMARATE
     Indication: Product used for unknown indication
  180. SALICYLIC ACID [Concomitant]
     Active Substance: SALICYLIC ACID
     Indication: Product used for unknown indication
  181. SODIUM FLUORIDE [Concomitant]
     Active Substance: SODIUM FLUORIDE
     Indication: Product used for unknown indication
  182. SULFAMETHOXAZOLE\TRIMETHOPRIM [Concomitant]
     Active Substance: SULFAMETHOXAZOLE\TRIMETHOPRIM
     Indication: Product used for unknown indication
     Route: 067
  183. SULFAMETHOXAZOLE\TRIMETHOPRIM [Concomitant]
     Active Substance: SULFAMETHOXAZOLE\TRIMETHOPRIM
     Route: 067
  184. SULFASALAZINE [Concomitant]
     Active Substance: SULFASALAZINE
     Indication: Product used for unknown indication
     Route: 058
  185. SULFASALAZINE [Concomitant]
     Active Substance: SULFASALAZINE
     Route: 048
  186. SULFASALAZINE [Concomitant]
     Active Substance: SULFASALAZINE
     Route: 058
  187. SULFASALAZINE [Concomitant]
     Active Substance: SULFASALAZINE
     Route: 058
  188. SULFASALAZINE [Concomitant]
     Active Substance: SULFASALAZINE
     Route: 058
  189. SULFASALAZINE [Concomitant]
     Active Substance: SULFASALAZINE
     Route: 058
  190. SULFASALAZINE [Concomitant]
     Active Substance: SULFASALAZINE
     Route: 058
  191. THYMOL [Concomitant]
     Active Substance: THYMOL
     Indication: Product used for unknown indication
     Route: 048
  192. THYMOL [Concomitant]
     Active Substance: THYMOL
     Route: 048
  193. TOCILIZUMAB [Concomitant]
     Active Substance: TOCILIZUMAB
     Indication: Product used for unknown indication
     Route: 058
  194. TOCILIZUMAB [Concomitant]
     Active Substance: TOCILIZUMAB
     Route: 016
  195. TOCILIZUMAB [Concomitant]
     Active Substance: TOCILIZUMAB
     Route: 058
  196. TOCILIZUMAB [Concomitant]
     Active Substance: TOCILIZUMAB
  197. TOCILIZUMAB [Concomitant]
     Active Substance: TOCILIZUMAB
     Route: 042
  198. TOCILIZUMAB [Concomitant]
     Active Substance: TOCILIZUMAB
     Route: 058
  199. TOCILIZUMAB [Concomitant]
     Active Substance: TOCILIZUMAB
     Route: 048
  200. TOCILIZUMAB [Concomitant]
     Active Substance: TOCILIZUMAB
     Route: 042
  201. TOCILIZUMAB [Concomitant]
     Active Substance: TOCILIZUMAB
     Route: 042
  202. TOCILIZUMAB [Concomitant]
     Active Substance: TOCILIZUMAB
     Route: 042
  203. TOCILIZUMAB [Concomitant]
     Active Substance: TOCILIZUMAB
     Route: 058
  204. TOCILIZUMAB [Concomitant]
     Active Substance: TOCILIZUMAB
  205. TOFACITINIB CITRATE [Concomitant]
     Active Substance: TOFACITINIB CITRATE
     Indication: Product used for unknown indication
  206. TRAMADOL HYDROCHLORIDE [Concomitant]
     Active Substance: TRAMADOL HYDROCHLORIDE
     Indication: Product used for unknown indication
  207. TRICLOSAN [Concomitant]
     Active Substance: TRICLOSAN
     Indication: Product used for unknown indication
  208. TYROTHRICIN [Concomitant]
     Active Substance: TYROTHRICIN
     Indication: Product used for unknown indication
     Route: 048
  209. TYROTHRICIN [Concomitant]
     Active Substance: TYROTHRICIN
     Route: 048
  210. USTEKINUMAB [Concomitant]
     Active Substance: USTEKINUMAB
     Indication: Product used for unknown indication
     Route: 042
  211. VITAMIN D3 [Concomitant]
     Active Substance: CHOLECALCIFEROL
     Indication: Product used for unknown indication
  212. VITAMIN D3 [Concomitant]
     Active Substance: CHOLECALCIFEROL
     Route: 058
  213. VITAMIN D3 [Concomitant]
     Active Substance: CHOLECALCIFEROL
     Route: 016
  214. VITAMIN D3 [Concomitant]
     Active Substance: CHOLECALCIFEROL
     Route: 058
  215. VITAMIN D3 [Concomitant]
     Active Substance: CHOLECALCIFEROL
     Route: 016
  216. VITAMIN D3 [Concomitant]
     Active Substance: CHOLECALCIFEROL
  217. XELJANZ [Concomitant]
     Active Substance: TOFACITINIB CITRATE
     Indication: Product used for unknown indication
     Route: 048
  218. XELJANZ [Concomitant]
     Active Substance: TOFACITINIB CITRATE
  219. CETIRIZINE HYDROCHLORIDE [Concomitant]
     Active Substance: CETIRIZINE HYDROCHLORIDE
     Indication: Product used for unknown indication
     Route: 048
  220. CETIRIZINE HYDROCHLORIDE [Concomitant]
     Active Substance: CETIRIZINE HYDROCHLORIDE
  221. CETIRIZINE HYDROCHLORIDE [Concomitant]
     Active Substance: CETIRIZINE HYDROCHLORIDE
  222. CETIRIZINE HYDROCHLORIDE [Concomitant]
     Active Substance: CETIRIZINE HYDROCHLORIDE
     Route: 048
  223. PANTOPRAZOLE SODIUM ANHYDROUS [Concomitant]
     Active Substance: PANTOPRAZOLE SODIUM ANHYDROUS
     Indication: Product used for unknown indication
     Route: 016
  224. PANTOPRAZOLE SODIUM ANHYDROUS [Concomitant]
     Active Substance: PANTOPRAZOLE SODIUM ANHYDROUS
     Route: 016
  225. CALCIUM CARBONATE\CHOLECALCIFEROL [Concomitant]
     Active Substance: CALCIUM CARBONATE\CHOLECALCIFEROL
     Indication: Product used for unknown indication
     Route: 058
  226. CALCIUM CARBONATE\CHOLECALCIFEROL [Concomitant]
     Active Substance: CALCIUM CARBONATE\CHOLECALCIFEROL
     Route: 016
  227. CALCIUM CARBONATE\CHOLECALCIFEROL [Concomitant]
     Active Substance: CALCIUM CARBONATE\CHOLECALCIFEROL
  228. CALCIUM CARBONATE\CHOLECALCIFEROL [Concomitant]
     Active Substance: CALCIUM CARBONATE\CHOLECALCIFEROL
  229. CALCIUM CARBONATE\CHOLECALCIFEROL [Concomitant]
     Active Substance: CALCIUM CARBONATE\CHOLECALCIFEROL
  230. CALCIUM CARBONATE\CHOLECALCIFEROL [Concomitant]
     Active Substance: CALCIUM CARBONATE\CHOLECALCIFEROL
  231. CALCIUM CARBONATE\CHOLECALCIFEROL [Concomitant]
     Active Substance: CALCIUM CARBONATE\CHOLECALCIFEROL
  232. CETIRIZINE [Concomitant]
     Active Substance: CETIRIZINE HYDROCHLORIDE
     Indication: Product used for unknown indication
     Route: 048
  233. CETIRIZINE [Concomitant]
     Active Substance: CETIRIZINE HYDROCHLORIDE
  234. CETIRIZINE [Concomitant]
     Active Substance: CETIRIZINE HYDROCHLORIDE
     Route: 048
  235. CETIRIZINE [Concomitant]
     Active Substance: CETIRIZINE HYDROCHLORIDE
  236. CHLORPHENIRAMINE MALEATE [Concomitant]
     Active Substance: CHLORPHENIRAMINE MALEATE
     Indication: Product used for unknown indication
  237. CHLORPHENIRAMINE MALEATE [Concomitant]
     Active Substance: CHLORPHENIRAMINE MALEATE
     Route: 048
  238. CHLORPHENIRAMINE MALEATE [Concomitant]
     Active Substance: CHLORPHENIRAMINE MALEATE
     Route: 048
  239. CHLORPHENIRAMINE MALEATE [Concomitant]
     Active Substance: CHLORPHENIRAMINE MALEATE
  240. CLOTRIMAZOLE [Concomitant]
     Active Substance: CLOTRIMAZOLE
     Indication: Product used for unknown indication
  241. CLOTRIMAZOLE [Concomitant]
     Active Substance: CLOTRIMAZOLE
     Route: 048
  242. CLOTRIMAZOLE [Concomitant]
     Active Substance: CLOTRIMAZOLE
     Route: 048
  243. CLOTRIMAZOLE [Concomitant]
     Active Substance: CLOTRIMAZOLE
  244. CLOTRIMAZOLE [Concomitant]
     Active Substance: CLOTRIMAZOLE
  245. CLOTRIMAZOLE [Concomitant]
     Active Substance: CLOTRIMAZOLE
  246. CLOTRIMAZOLE [Concomitant]
     Active Substance: CLOTRIMAZOLE
  247. CLOTRIMAZOLE [Concomitant]
     Active Substance: CLOTRIMAZOLE
  248. HYDROCORTISONE [Concomitant]
     Active Substance: HYDROCORTISONE
     Indication: Product used for unknown indication
     Route: 058
  249. HYDROCORTISONE [Concomitant]
     Active Substance: HYDROCORTISONE
     Route: 048
  250. HYDROCORTISONE [Concomitant]
     Active Substance: HYDROCORTISONE
     Route: 049
  251. OMEPRAZOLE [Concomitant]
     Active Substance: OMEPRAZOLE
     Indication: Product used for unknown indication
     Route: 016
  252. OMEPRAZOLE [Concomitant]
     Active Substance: OMEPRAZOLE
     Route: 016
  253. POVIDONE-IODINE [Concomitant]
     Active Substance: POVIDONE-IODINE
     Indication: Product used for unknown indication
  254. ACETAMINOPHEN\OXYCODONE HYDROCHLORIDE [Concomitant]
     Active Substance: ACETAMINOPHEN\OXYCODONE HYDROCHLORIDE
  255. BIOFLAVONOIDS [Concomitant]
     Active Substance: BIOFLAVONOIDS
  256. CHLORHEXIDINE [Concomitant]
     Active Substance: CHLORHEXIDINE
     Indication: Product used for unknown indication
     Route: 002
  257. CODEINE [Concomitant]
     Active Substance: CODEINE
  258. CORTISONE ACETATE [Concomitant]
     Active Substance: CORTISONE ACETATE
     Route: 003
  259. CORTISONE ACETATE [Concomitant]
     Active Substance: CORTISONE ACETATE
  260. SULFISOMIDINE [Concomitant]
     Active Substance: SULFISOMIDINE
  261. IMURAN [Concomitant]
     Active Substance: AZATHIOPRINE
  262. METHOCARBAMOL [Concomitant]
     Active Substance: METHOCARBAMOL
  263. SULFAMETHOXAZOLE [Concomitant]
     Active Substance: SULFAMETHOXAZOLE
  264. TUMS [Concomitant]
     Active Substance: CALCIUM CARBONATE
  265. ALENDRONIC ACID [Concomitant]
     Active Substance: ALENDRONIC ACID
  266. CHLORHEXIDINE GLUCONATE\ISOPROPYL ALCOHOL [Concomitant]
     Active Substance: CHLORHEXIDINE GLUCONATE\ISOPROPYL ALCOHOL
     Indication: Product used for unknown indication
  267. CHLORHEXIDINE GLUCONATE\ISOPROPYL ALCOHOL [Concomitant]
     Active Substance: CHLORHEXIDINE GLUCONATE\ISOPROPYL ALCOHOL
  268. IODINE [Concomitant]
     Active Substance: IODINE
  269. IODINE [Concomitant]
     Active Substance: IODINE
  270. IODINE [Concomitant]
     Active Substance: IODINE
  271. IODINE [Concomitant]
     Active Substance: IODINE
  272. IODINE [Concomitant]
     Active Substance: IODINE
  273. IODINE [Concomitant]
     Active Substance: IODINE
  274. PREGABALIN [Concomitant]
     Active Substance: PREGABALIN

REACTIONS (1)
  - Death [Fatal]
